FAERS Safety Report 18716437 (Version 1)
Quarter: 2021Q1

REPORT INFORMATION
  Report Type: Spontaneous
  Country: US (occurrence: US)
  Receive Date: 20210107
  Receipt Date: 20210107
  Transmission Date: 20210419
  Serious: Yes (Other)
  Sender: FDA-Public Use
  Company Number: None

PATIENT

DRUGS (1)
  1. GLIMEPIRIDE. [Suspect]
     Active Substance: GLIMEPIRIDE

REACTIONS (1)
  - Hypersensitivity [None]
